FAERS Safety Report 6583303-4 (Version None)
Quarter: 2010Q1

REPORT INFORMATION
  Report Type: 
  Country: None (occurrence: None)
  Receive Date: 20100216
  Receipt Date: 20100215
  Transmission Date: 20100710
  Serious: Yes (Death, Life-Threatening)
  Sender: FDA-Public Use
  Company Number: D0066495A

PATIENT
  Sex: Male

DRUGS (18)
  1. ULTIVA [Suspect]
     Route: 042
     Dates: start: 20080123, end: 20080127
  2. CIPROFLOXACIN [Suspect]
     Route: 042
     Dates: start: 20080114
  3. PIPERACILLIN AND TAZOBACTAM [Suspect]
     Route: 042
     Dates: start: 20071228, end: 20080130
  4. FLUCONAZOLE [Suspect]
     Dosage: 400MG PER DAY
     Route: 042
     Dates: start: 20080114, end: 20080128
  5. FURORESE [Suspect]
     Route: 042
     Dates: start: 20080117, end: 20080131
  6. HEPARIN [Suspect]
     Indication: THROMBOSIS PROPHYLAXIS
     Route: 042
     Dates: start: 20080117
  7. NEXIUM [Suspect]
     Indication: PROPHYLAXIS
     Dosage: 40MG PER DAY
     Route: 048
     Dates: start: 20080120
  8. PROPOFOL [Suspect]
     Route: 042
     Dates: start: 20080123, end: 20080127
  9. KETAMINE HCL [Suspect]
     Route: 042
  10. BELOC ZOK [Suspect]
     Route: 048
     Dates: start: 20080127
  11. BELOC [Suspect]
     Route: 042
     Dates: start: 20080126, end: 20080127
  12. DULCOLAX [Suspect]
     Indication: CONSTIPATION
     Dosage: 10MG SINGLE DOSE
     Route: 054
     Dates: start: 20080127, end: 20080127
  13. LYRICA [Suspect]
     Indication: DEPRESSION
     Route: 048
     Dates: start: 20080128, end: 20080201
  14. DORMICUM [Suspect]
     Indication: RESTLESSNESS
     Route: 042
     Dates: start: 20080130, end: 20080201
  15. INSULIN [Suspect]
     Route: 042
     Dates: start: 20080128, end: 20080203
  16. HYDROCORTISONE [Suspect]
     Indication: SEPSIS
     Route: 042
     Dates: start: 20080129, end: 20080129
  17. L-THYROXIN [Suspect]
     Indication: HYPOTHYROIDISM
     Route: 048
     Dates: start: 20080129
  18. MULTIPLE MEDICATION [Suspect]
     Route: 065

REACTIONS (12)
  - BLISTER [None]
  - CONSTIPATION [None]
  - DEPRESSION [None]
  - HYPERGLYCAEMIA [None]
  - HYPERTENSION [None]
  - HYPOTHYROIDISM [None]
  - LIP EROSION [None]
  - ORAL MUCOSA EROSION [None]
  - RASH [None]
  - SEPSIS [None]
  - STEVENS-JOHNSON SYNDROME [None]
  - TOXIC EPIDERMAL NECROLYSIS [None]
